FAERS Safety Report 6424472-6 (Version None)
Quarter: 2009Q4

REPORT INFORMATION
  Report Type: 
  Country: None (occurrence: None)
  Receive Date: 20091103
  Receipt Date: 20091026
  Transmission Date: 20100525
  Serious: Yes (Death, Hospitalization)
  Sender: FDA-Public Use
  Company Number: US-MYLANLABS-2009S1018233

PATIENT
  Age: 82 Year
  Sex: Female

DRUGS (24)
  1. ANAGRELIDE HYDROCHLORIDE CAPSULES [Suspect]
     Indication: ESSENTIAL THROMBOCYTHAEMIA
     Route: 048
     Dates: start: 20090828, end: 20091005
  2. AMITIPTYLINE [Concomitant]
     Indication: SEDATIVE THERAPY
     Dosage: 1/4 OF 25MG TABLET
     Route: 048
  3. ASPIRIN [Concomitant]
     Route: 048
  4. CARVEDILOL [Concomitant]
     Indication: CARDIAC DISORDER
     Route: 048
  5. CLONIDINE HCL [Concomitant]
     Indication: CARDIAC DISORDER
     Route: 048
  6. DILTIAZEM HCL [Concomitant]
     Indication: CARDIAC DISORDER
     Route: 048
  7. FUROSEMIDE GNR [Concomitant]
     Indication: FLUID RETENTION
     Route: 048
  8. GLIMEPIRIDE [Concomitant]
     Indication: BLOOD GLUCOSE INCREASED
     Route: 048
  9. HYDRALAZINE HCL [Concomitant]
     Indication: CARDIAC DISORDER
     Route: 048
  10. IRON TABLETS [Concomitant]
     Indication: VITAMIN SUPPLEMENTATION
     Route: 048
  11. JANUVIA [Concomitant]
     Indication: BLOOD GLUCOSE INCREASED
     Route: 048
  12. KLOR-CON [Concomitant]
     Indication: BLOOD POTASSIUM
     Route: 048
  13. OMEPRAZOLE CAPSULES 20 MG [Concomitant]
     Indication: GASTROOESOPHAGEAL REFLUX DISEASE
     Route: 048
  14. SIMVASTATIN [Concomitant]
     Indication: BLOOD CHOLESTEROL
     Route: 048
  15. SINGULAIR [Concomitant]
     Indication: DYSPNOEA
     Route: 048
  16. SIMBICORT TURBUHALER [Concomitant]
     Indication: DYSPNOEA
     Dosage: 2 PUFFS TWO TIMES A DAY
     Route: 055
  17. TEKTURNA /01763601/ [Concomitant]
     Indication: CARDIAC DISORDER
     Route: 048
  18. CRANBERRY [Concomitant]
     Indication: PROPHYLAXIS URINARY TRACT INFECTION
     Dosage: 1 TABLET DAILY
     Route: 048
  19. CENTRUM SILVER [Concomitant]
     Indication: VITAMIN SUPPLEMENTATION
     Dosage: 1 TABLET DAILY
     Route: 048
  20. ALPRAZOLAM [Concomitant]
     Indication: ANXIETY
     Dosage: 1 TABLET Q 4 HOURS AS NEEDED
     Route: 048
  21. TYLENOL (CAPLET) [Concomitant]
     Indication: PAIN
     Dosage: 1000MG PO Q 6 HRS AN NEEDED
     Route: 048
  22. TRAMADOL HCL [Concomitant]
     Indication: PAIN
     Route: 048
  23. INSULIN INJECTION [Concomitant]
     Indication: DIABETES MELLITUS
     Dosage: SLIDING SCALE
     Route: 058
  24. ALBUTEROL [Concomitant]
     Indication: DYSPNOEA
     Dosage: 2 PUFFS EVERY DAY AT NIGHT
     Route: 055

REACTIONS (7)
  - ACUTE MYOCARDIAL INFARCTION [None]
  - BLOOD GLUCOSE INCREASED [None]
  - DRUG EFFECT DECREASED [None]
  - INCORRECT DOSE ADMINISTERED [None]
  - INTRA-ABDOMINAL HAEMATOMA [None]
  - INTRA-ABDOMINAL HAEMORRHAGE [None]
  - PRODUCT SUBSTITUTION ISSUE [None]
